FAERS Safety Report 8218964-7 (Version None)
Quarter: 2012Q1

REPORT INFORMATION
  Report Type: 
  Country: None (occurrence: None)
  Receive Date: 20120319
  Receipt Date: 20120308
  Transmission Date: 20120608
  Serious: Yes (Hospitalization)
  Sender: FDA-Public Use
  Company Number: FR-MERCK-1203USA01524

PATIENT
  Age: 65 Year
  Sex: Female

DRUGS (12)
  1. OXYCODONE [Concomitant]
     Indication: BACK PAIN
     Route: 065
  2. INSULIN [Concomitant]
     Route: 065
  3. ONDANSETRON [Concomitant]
     Route: 042
     Dates: start: 20110701
  4. TENORMIN [Concomitant]
     Route: 065
  5. IFOSFAMIDE [Suspect]
     Route: 042
     Dates: start: 20120209, end: 20120211
  6. LEVOTHYROXINE SODIUM [Concomitant]
     Route: 065
  7. ACETAMINOPHEN [Concomitant]
     Indication: BACK PAIN
     Route: 065
  8. EMEND [Suspect]
     Route: 042
     Dates: start: 20120209, end: 20120211
  9. PRIMPERAN TAB [Concomitant]
     Route: 042
     Dates: start: 20110701
  10. NITRODERM [Concomitant]
     Route: 065
  11. ASPIRIN [Concomitant]
     Route: 065
  12. PAROXETINE HYDROCHLORIDE [Concomitant]
     Route: 065

REACTIONS (2)
  - ENCEPHALOPATHY [None]
  - DRUG INTERACTION [None]
